FAERS Safety Report 17103997 (Version 3)
Quarter: 2020Q1

REPORT INFORMATION
  Report Type: Spontaneous
  Country: BR (occurrence: BR)
  Receive Date: 20191203
  Receipt Date: 20200218
  Transmission Date: 20200409
  Serious: Yes (Other)
  Sender: FDA-Public Use
  Company Number: NVSC2019BR052657

PATIENT
  Sex: Female

DRUGS (1)
  1. EXELON [Suspect]
     Active Substance: RIVASTIGMINE TARTRATE
     Indication: PRODUCT USED FOR UNKNOWN INDICATION
     Dosage: UNK (PATCH 9MG/5CM2).DOSE:30 PATCHES
     Route: 065

REACTIONS (5)
  - Diabetes mellitus [Unknown]
  - Product adhesion issue [Unknown]
  - Laziness [Unknown]
  - Skin atrophy [Unknown]
  - Skin discolouration [Unknown]
